FAERS Safety Report 18866965 (Version 1)
Quarter: 2021Q1

REPORT INFORMATION
  Report Type: Spontaneous
  Country: CN (occurrence: CN)
  Receive Date: 20210209
  Receipt Date: 20210209
  Transmission Date: 20210420
  Serious: Yes (Hospitalization)
  Sender: FDA-Public Use
  Company Number: CN-BAYER-2021-049025

PATIENT
  Age: 35 Year
  Sex: Female
  Weight: 65 kg

DRUGS (1)
  1. AVELOX [Suspect]
     Active Substance: MOXIFLOXACIN HYDROCHLORIDE
     Indication: ENDOMETRITIS
     Dosage: 1 DF, QD
     Route: 048
     Dates: start: 20201005, end: 20201005

REACTIONS (3)
  - Syncope [Recovering/Resolving]
  - Loss of consciousness [Recovering/Resolving]
  - Hypopnoea [Recovering/Resolving]

NARRATIVE: CASE EVENT DATE: 20201005
